FAERS Safety Report 10149778 (Version 2)
Quarter: 2014Q2

REPORT INFORMATION
  Report Type: Spontaneous
  Country: GB (occurrence: None)
  Receive Date: 20140430
  Receipt Date: 20140507
  Transmission Date: 20141212
  Serious: Yes (Other)
  Sender: FDA-Public Use
  Company Number: AUR-APL-2014-05019

PATIENT
  Age: 28 Year
  Sex: Male

DRUGS (4)
  1. RIBAVIRIN (RIBAVIRIN) [Suspect]
     Indication: HEPATITIS C
     Dosage: 1200 MG (600 MG, 2 IN 1 D)
     Route: 048
     Dates: start: 20140331, end: 20140411
  2. INTERFERON GAMMA-1B [Suspect]
     Indication: HEPATITIS C
     Dates: start: 20140331, end: 20140407
  3. ZAPONEX (CLOZAPINE) [Suspect]
     Indication: SCHIZOPHRENIA
     Route: 048
     Dates: start: 20120207
  4. LITHIUM [Concomitant]

REACTIONS (1)
  - Neutrophil count decreased [None]
